FAERS Safety Report 20885011 (Version 1)
Quarter: 2022Q2

REPORT INFORMATION
  Report Type: Spontaneous
  Country: US (occurrence: US)
  Receive Date: 20220527
  Receipt Date: 20220527
  Transmission Date: 20220721
  Serious: Yes (Other)
  Sender: FDA-Public Use
  Company Number: US-SA-SAC20220521000051

PATIENT
  Age: 64 Year
  Sex: Female

DRUGS (1)
  1. ZANTAC [Suspect]
     Active Substance: RANITIDINE HYDROCHLORIDE
     Indication: Dyspepsia
     Dosage: 75 MG FREQUENCY-OTHER
     Dates: start: 199501, end: 199801

REACTIONS (3)
  - Thyroid cancer [Unknown]
  - Breast cancer female [Unknown]
  - Renal cancer [Unknown]

NARRATIVE: CASE EVENT DATE: 20000101
